FAERS Safety Report 20230420 (Version 1)
Quarter: 2021Q4

REPORT INFORMATION
  Report Type: Spontaneous
  Country: IT (occurrence: IT)
  Receive Date: 20211227
  Receipt Date: 20211227
  Transmission Date: 20220303
  Serious: Yes (Other)
  Sender: FDA-Public Use
  Company Number: IT-CELLTRION INC.-2021IT017525

PATIENT

DRUGS (16)
  1. ADALIMUMAB [Suspect]
     Active Substance: ADALIMUMAB
     Indication: Hidradenitis
     Dosage: 40 MILLIGRAM, QWK
     Route: 065
  2. ADALIMUMAB [Suspect]
     Active Substance: ADALIMUMAB
     Dosage: 40 MILLIGRAM, QWK
     Route: 065
  3. INFLIXIMAB [Suspect]
     Active Substance: INFLIXIMAB
     Indication: Product used for unknown indication
  4. ISOTRETINOIN [Concomitant]
     Active Substance: ISOTRETINOIN
  5. DAPSONE [Concomitant]
     Active Substance: DAPSONE
  6. ANAKINRA [Concomitant]
     Active Substance: ANAKINRA
  7. ENOXAPARIN [Concomitant]
     Active Substance: ENOXAPARIN
     Dosage: 4000 UL
  8. BETAMETHASONE [Concomitant]
     Active Substance: BETAMETHASONE
     Dosage: 2 MILLIGRAM, QD
  9. BETAMETHASONE [Concomitant]
     Active Substance: BETAMETHASONE
     Dosage: 4 MILLIGRAM FOR 2 MONTHS
  10. CYCLOSPORINE [Concomitant]
     Active Substance: CYCLOSPORINE
  11. TEICOPLANIN [Concomitant]
     Active Substance: TEICOPLANIN
  12. ETANERCEPT [Concomitant]
     Active Substance: ETANERCEPT
  13. RIFAMPIN [Concomitant]
     Active Substance: RIFAMPIN
  14. CLINDAMYCIN [Concomitant]
     Active Substance: CLINDAMYCIN
  15. AZITHROMYCIN [Concomitant]
     Active Substance: AZITHROMYCIN
     Dosage: 500 MILLIGRAM
  16. USTEKINUMAB [Concomitant]
     Active Substance: USTEKINUMAB

REACTIONS (3)
  - COVID-19 [Recovering/Resolving]
  - Condition aggravated [Unknown]
  - Hidradenitis [Recovering/Resolving]

NARRATIVE: CASE EVENT DATE: 20201101
